FAERS Safety Report 6171964-3 (Version None)
Quarter: 2009Q2

REPORT INFORMATION
  Report Type: 
  Country: None (occurrence: None)
  Receive Date: 20090429
  Receipt Date: 20090421
  Transmission Date: 20091009
  Serious: Yes (Other)
  Sender: FDA-Public Use
  Company Number: PHHY2009DE05452

PATIENT
  Sex: Male
  Weight: 116 kg

DRUGS (9)
  1. DIOVAN [Suspect]
     Indication: HYPERTENSION
     Dosage: 80 MG, BID
     Dates: start: 20090110, end: 20090212
  2. DIOVAN [Suspect]
     Dosage: 80 MG, QD
     Dates: end: 20090406
  3. METFORMIN HCL [Concomitant]
  4. NOVONORM [Concomitant]
  5. BISOPROLOL FUMARATE [Concomitant]
  6. ASS ^CT-ARZNEIMITTEL^ [Concomitant]
     Dosage: 100 MG, UNK
  7. ALLOPURINOL [Concomitant]
  8. FUROSEMID ^DAK^ [Concomitant]
  9. SIMVASTATIN [Concomitant]

REACTIONS (7)
  - APHONIA [None]
  - DIZZINESS [None]
  - EPISTAXIS [None]
  - EYE DISCHARGE [None]
  - PRESYNCOPE [None]
  - SYNCOPE [None]
  - VERTIGO [None]
